FAERS Safety Report 5842196-0 (Version None)
Quarter: 2008Q3

REPORT INFORMATION
  Report Type: 
  Country: None (occurrence: None)
  Receive Date: 20080812
  Receipt Date: 20080731
  Transmission Date: 20090109
  Serious: Yes (Other)
  Sender: FDA-Public Use
  Company Number: US-JNJCH-2006148264

PATIENT
  Sex: Female
  Weight: 90.7 kg

DRUGS (6)
  1. BENGAY VANISHING [Suspect]
     Indication: NECK PAIN
     Dosage: TEXT:^ QUARTER SIZE^ TWICE IN 10 DAYS
     Route: 061
  2. ALL OTHER NON-THERAPEUTIC PRODUCTS [Suspect]
     Indication: DRUG USE FOR UNKNOWN INDICATION
     Dosage: TEXT:UNSPECIFIED
     Route: 061
  3. SYNTHROID [Concomitant]
     Indication: THYROID DISORDER
     Dosage: TEXT:850MCG DAILY
     Route: 048
  4. ANTIDEPRESSANTS [Concomitant]
     Indication: DEPRESSION
     Dosage: TEXT:50MG DAILY
     Route: 048
  5. PROTONIX [Concomitant]
     Indication: ULCER
     Dosage: TEXT:UNSPECIFIED
     Route: 065
  6. TOPAMAX [Concomitant]
     Indication: BRAIN NEOPLASM
     Dosage: TEXT:UNSPECIFIED
     Route: 065

REACTIONS (3)
  - APPLICATION SITE IRRITATION [None]
  - PALLOR [None]
  - SCAR [None]
